FAERS Safety Report 18192887 (Version 1)
Quarter: 2020Q3

REPORT INFORMATION
  Report Type: Spontaneous
  Country: US (occurrence: US)
  Receive Date: 20200825
  Receipt Date: 20200825
  Transmission Date: 20201103
  Serious: No
  Sender: FDA-Public Use
  Company Number: US-ACCORD-190886

PATIENT
  Age: 61 Year
  Sex: Female

DRUGS (1)
  1. BUPROPION ACCORD [Suspect]
     Active Substance: BUPROPION HYDROCHLORIDE
     Indication: FIBROMYALGIA
     Dosage: STRENGTH 150 MG, ONCE A DAY
     Route: 048
     Dates: start: 202006, end: 20200630

REACTIONS (4)
  - Product odour abnormal [Unknown]
  - Symptom recurrence [Recovered/Resolved]
  - Off label use [Unknown]
  - Product contamination [Unknown]

NARRATIVE: CASE EVENT DATE: 20200621
